FAERS Safety Report 8313461 (Version 3)
Quarter: 2013Q1

REPORT INFORMATION
  Report Type: Spontaneous
  Country: US (occurrence: None)
  Receive Date: 20111216
  Receipt Date: 20130125
  Transmission Date: 20140127
  Serious: Yes (Life-Threatening, Hospitalization, Other)
  Sender: FDA-Public Use
  Company Number: NSR_00325_2011

PATIENT
  Sex: Male
  Weight: 90 kg

DRUGS (9)
  1. METOCLOPRAMIDE [Suspect]
     Dosage: (DF [5 OR MORE TABLETS/DAY] ORAL), (10 MG BID ORAL) 3 DAYS UNTIL NOT CONTINUING?
     Route: 048
  2. SERTRALINE HYDROCHLORIDE [Suspect]
     Dosage: (DF ORAL)
     Route: 048
  3. VENLAFAXINE [Suspect]
     Dosage: (DF ORAL)
     Route: 048
  4. ALCOHOL [Suspect]
     Dosage: (DF)
  5. NEBIVOLOL [Concomitant]
  6. MESALAMINE [Concomitant]
  7. RABEPRAZOLE [Concomitant]
  8. VALSARTAN [Concomitant]
  9. CLINDAMYCIN [Concomitant]

REACTIONS (16)
  - NEUROLEPTIC MALIGNANT SYNDROME [None]
  - OVERDOSE [None]
  - CLOSTRIDIUM DIFFICILE COLITIS [None]
  - CONVULSION [None]
  - HAEMOGLOBIN DECREASED [None]
  - HAEMATOCRIT DECREASED [None]
  - METABOLIC ACIDOSIS [None]
  - RENAL FAILURE ACUTE [None]
  - BLOOD ALCOHOL INCREASED [None]
  - TELANGIECTASIA [None]
  - ISCHAEMIA [None]
  - QRS AXIS ABNORMAL [None]
  - BUNDLE BRANCH BLOCK LEFT [None]
  - NO THERAPEUTIC RESPONSE [None]
  - HAEMODIALYSIS [None]
  - DEHYDRATION [None]
